FAERS Safety Report 16672790 (Version 1)
Quarter: 2019Q3

REPORT INFORMATION
  Report Type: Report from Study
  Country: US (occurrence: US)
  Receive Date: 20190806
  Receipt Date: 20190806
  Transmission Date: 20191004
  Serious: Yes (Death, Life-Threatening, Hospitalization)
  Sender: FDA-Public Use
  Company Number: US-MYLANLABS-2019M1072427

PATIENT
  Age: 69 Year
  Sex: Female
  Weight: 40.7 kg

DRUGS (9)
  1. PREDNISONE. [Suspect]
     Active Substance: PREDNISONE
     Indication: DECREASED APPETITE
     Dosage: 10 MILLIGRAM, QD
     Dates: start: 20190620
  2. BUDESONIDE. [Concomitant]
     Active Substance: BUDESONIDE
     Dosage: 3 MILLIGRAM, BID
     Dates: start: 20190613
  3. CYTARABINE. [Suspect]
     Active Substance: CYTARABINE
     Dosage: 2980 GRAM
     Route: 042
     Dates: start: 20190219, end: 20190223
  4. PREDNISONE. [Suspect]
     Active Substance: PREDNISONE
     Dosage: 10 MILLIGRAM, QD
     Route: 048
     Dates: start: 20190718, end: 20190719
  5. INSULIN GLARGINE [Concomitant]
     Active Substance: INSULIN GLARGINE
  6. CYTARABINE. [Suspect]
     Active Substance: CYTARABINE
     Indication: ACUTE MYELOID LEUKAEMIA
     Dosage: 150 MILLIGRAM, QD
     Route: 041
     Dates: start: 20190110, end: 20190116
  7. DAUNORUBICIN [Suspect]
     Active Substance: DAUNORUBICIN
     Indication: ACUTE MYELOID LEUKAEMIA
     Dosage: 92 MILLIGRAM, QD
     Route: 041
     Dates: start: 20190110, end: 20190112
  8. BUDESONIDE. [Concomitant]
     Active Substance: BUDESONIDE
     Indication: PRODUCT USED FOR UNKNOWN INDICATION
     Dosage: 3 MILLIGRAM, QD
     Dates: start: 20190514
  9. PREDNISONE. [Suspect]
     Active Substance: PREDNISONE
     Dosage: 20 MILLIGRAM, QD
     Route: 048
     Dates: start: 20190711

REACTIONS (4)
  - Acute myeloid leukaemia [Fatal]
  - Hyperglycaemia [Recovered/Resolved]
  - Off label use [Fatal]
  - Decreased appetite [Recovering/Resolving]

NARRATIVE: CASE EVENT DATE: 20190715
